FAERS Safety Report 8985186 (Version 1)
Quarter: 2012Q4

REPORT INFORMATION
  Report Type: 
  Country: BR (occurrence: BR)
  Receive Date: 20121226
  Receipt Date: 20121226
  Transmission Date: 20130627
  Serious: Yes (Other)
  Sender: FDA-Public Use
  Company Number: PHHY2012BR116109

PATIENT
  Sex: Female
  Weight: 70 kg

DRUGS (5)
  1. ACLASTA [Suspect]
     Indication: OSTEOPOROSIS
     Dosage: 5 mg, UNK
     Route: 042
     Dates: start: 20121211
  2. ALPRAZOLAM [Concomitant]
  3. BUPROPION [Concomitant]
  4. PLANTAGO OVATA [Concomitant]
  5. ESTROGEL [Concomitant]

REACTIONS (13)
  - Goitre [Not Recovered/Not Resolved]
  - Eye discharge [Not Recovered/Not Resolved]
  - Ear pain [Not Recovered/Not Resolved]
  - Chest pain [Not Recovered/Not Resolved]
  - Blood uric acid abnormal [Not Recovered/Not Resolved]
  - Ocular hyperaemia [Not Recovered/Not Resolved]
  - Mobility decreased [Unknown]
  - Dyspnoea [Not Recovered/Not Resolved]
  - Pain [Not Recovered/Not Resolved]
  - Eye pain [Not Recovered/Not Resolved]
  - Oedema peripheral [Not Recovered/Not Resolved]
  - Pain in extremity [Not Recovered/Not Resolved]
  - Fatigue [Not Recovered/Not Resolved]
